FAERS Safety Report 6933884-3 (Version None)
Quarter: 2010Q3

REPORT INFORMATION
  Report Type: 
  Country: None (occurrence: None)
  Receive Date: 20100820
  Receipt Date: 20100813
  Transmission Date: 20110219
  Serious: Yes (Death, Hospitalization)
  Sender: FDA-Public Use
  Company Number: HU-PFIZER INC-2008154174

PATIENT
  Age: 73 Year
  Sex: Male
  Weight: 42 kg

DRUGS (12)
  1. SUNITINIB MALATE [Suspect]
     Indication: NON-SMALL CELL LUNG CANCER
     Dosage: 37.5 MG, 1X/DAY
     Route: 048
     Dates: start: 20081111, end: 20081228
  2. ERLOTINIB HYDROCHLORIDE [Suspect]
     Indication: NON-SMALL CELL LUNG CANCER
     Dosage: 150 MG, 1X/DAY
     Route: 048
     Dates: start: 20081111, end: 20081228
  3. CLINDAMYCIN HYDROCHLORIDE [Concomitant]
     Dosage: UNK
     Route: 042
     Dates: start: 20081125
  4. ATENOLOL AND CHLORTHALIDONE [Concomitant]
     Dosage: UNK
     Route: 048
     Dates: start: 20000101
  5. PENTOXIFYLLINE [Concomitant]
     Dosage: UNK
     Route: 048
     Dates: start: 20020101
  6. ALLOPURINOL [Concomitant]
     Dosage: UNK
     Route: 048
     Dates: start: 20000101
  7. TAMSULOSIN HCL [Concomitant]
     Dosage: UNK
     Route: 048
     Dates: start: 20040101
  8. ACETYLSALICYLIC ACID [Concomitant]
     Dosage: UNK
     Route: 048
     Dates: start: 20070101
  9. ACEMETACIN [Concomitant]
     Dosage: UNK
     Route: 048
     Dates: start: 20080101
  10. MEGESTROL [Concomitant]
     Dosage: UNK
     Route: 048
     Dates: start: 20081125
  11. MOMETASONE FUROATE [Concomitant]
     Dosage: UNK
     Route: 062
     Dates: start: 20081125
  12. GENERAL NUTRIENTS/VITAMINS NOS [Concomitant]
     Dosage: UNK
     Route: 048
     Dates: start: 20080901

REACTIONS (3)
  - DISEASE PROGRESSION [None]
  - FATIGUE [None]
  - NON-SMALL CELL LUNG CANCER [None]
